FAERS Safety Report 12563063 (Version 4)
Quarter: 2016Q3

REPORT INFORMATION
  Report Type: Spontaneous
  Country: CZ (occurrence: CZ)
  Receive Date: 20160715
  Receipt Date: 20160809
  Transmission Date: 20161109
  Serious: Yes (Hospitalization, Other)
  Sender: FDA-Public Use
  Company Number: CZ-PFIZER INC-2016341385

PATIENT
  Age: 46 Year
  Sex: Female

DRUGS (3)
  1. APO-OMEPRAZOLE [Concomitant]
     Active Substance: OMEPRAZOLE
     Dosage: 20 MG, 1X/DAY (1-0-0)
  2. METHOTREXATE SODIUM. [Suspect]
     Active Substance: METHOTREXATE SODIUM
     Indication: RHEUMATOID ARTHRITIS
     Dosage: 15 MG, WEEKLY (2.1429 MG)
     Route: 048
     Dates: start: 20160514, end: 20160521
  3. ACIDUM FOLICUM [Concomitant]
     Active Substance: FOLIC ACID
     Dosage: 10 MG, WEEKLY (AFTER METHOTROXATUM)

REACTIONS (11)
  - Drug eruption [Recovered/Resolved]
  - Inflammatory marker increased [Unknown]
  - Renal failure [Recovered/Resolved]
  - Idiosyncratic drug reaction [Recovered/Resolved]
  - Rash [Recovered/Resolved]
  - Vomiting [Recovered/Resolved]
  - Diarrhoea [Recovered/Resolved]
  - Subileus [Recovered/Resolved]
  - Abdominal pain [Recovered/Resolved]
  - Mineral deficiency [Unknown]
  - Hypotension [Recovered/Resolved]

NARRATIVE: CASE EVENT DATE: 20160525
